FAERS Safety Report 20351564 (Version 1)
Quarter: 2022Q1

REPORT INFORMATION
  Report Type: Spontaneous
  Country: US (occurrence: None)
  Receive Date: 20220118
  Receipt Date: 20220118
  Transmission Date: 20220423
  Serious: Yes (Hospitalization, Disabling, Other)
  Sender: FDA-Public Use
  Company Number: None

PATIENT
  Age: 30 Year
  Sex: Male
  Weight: 94.8 kg

DRUGS (7)
  1. INVEGA SUSTENNA [Suspect]
     Active Substance: PALIPERIDONE PALMITATE
     Indication: Mental disorder
  2. HALDOL [Concomitant]
     Active Substance: HALOPERIDOL
  3. BENZTROPINE [Concomitant]
     Active Substance: BENZTROPINE
  4. KOLONOPIN [Concomitant]
  5. ASPIRIN [Concomitant]
     Active Substance: ASPIRIN
  6. COUGH SYRUP [Concomitant]
     Active Substance: DEXTROMETHORPHAN HYDROBROMIDE\GUAIFENESIN
  7. CAFFEINE PILLS [Concomitant]

REACTIONS (2)
  - Suspected product quality issue [None]
  - Myocardial infarction [None]

NARRATIVE: CASE EVENT DATE: 20160913
